FAERS Safety Report 17698729 (Version 1)
Quarter: 2020Q2

REPORT INFORMATION
  Report Type: Spontaneous
  Country: US (occurrence: US)
  Receive Date: 20200423
  Receipt Date: 20200423
  Transmission Date: 20200714
  Serious: Yes (Disabling)
  Sender: FDA-Public Use
  Company Number: None

PATIENT
  Age: 59 Year
  Sex: Female
  Weight: 60.3 kg

DRUGS (13)
  1. FOSAMAX [Suspect]
     Active Substance: ALENDRONATE SODIUM
  2. ESCITALOPRAM [Concomitant]
     Active Substance: ESCITALOPRAM OXALATE
  3. QUETIAPINE. [Concomitant]
     Active Substance: QUETIAPINE
  4. CALTRATE [Concomitant]
     Active Substance: CALCIUM CARBONATE
  5. MULTIVITAMIN [Concomitant]
     Active Substance: VITAMINS
  6. LEVOTHYROXINE. [Concomitant]
     Active Substance: LEVOTHYROXINE
  7. XANAX [Concomitant]
     Active Substance: ALPRAZOLAM
  8. BONIVA [Suspect]
     Active Substance: IBANDRONATE SODIUM
  9. VITAMIN D [Concomitant]
     Active Substance: VITAMIN D NOS
  10. ZYRTEC [Concomitant]
     Active Substance: CETIRIZINE HYDROCHLORIDE
  11. BONIVA [Suspect]
     Active Substance: IBANDRONATE SODIUM
     Indication: OSTEOPOROSIS
     Route: 048
     Dates: start: 19980801, end: 20190801
  12. METOPROLOL. [Concomitant]
     Active Substance: METOPROLOL
  13. SUMATRIPTAN. [Concomitant]
     Active Substance: SUMATRIPTAN

REACTIONS (4)
  - Gingival disorder [None]
  - Tooth loss [None]
  - Condition aggravated [None]
  - Tooth disorder [None]

NARRATIVE: CASE EVENT DATE: 20200220
